FAERS Safety Report 26007638 (Version 2)
Quarter: 2025Q4

REPORT INFORMATION
  Report Type: Spontaneous
  Country: CN (occurrence: CN)
  Receive Date: 20251106
  Receipt Date: 20251119
  Transmission Date: 20260118
  Serious: Yes (Other)
  Sender: NOVARTIS
  Company Number: CN-002147023-NVSC2025CN168249

PATIENT
  Age: 36 Year
  Sex: Male

DRUGS (4)
  1. COSENTYX [Suspect]
     Active Substance: SECUKINUMAB
     Indication: Ankylosing spondylitis
     Dosage: 300 MG, QD, 2 INJECTIONS (150MG ?2) EACH TIME (ROUTE: INJECT)
     Route: 050
     Dates: start: 202312
  2. COSENTYX [Suspect]
     Active Substance: SECUKINUMAB
     Dosage: 150 MG, QD, 1 INJECTION (150MG) EACH TIME (ROUTE: INJECT)
     Route: 050
  3. ISONIAZID [Concomitant]
     Active Substance: ISONIAZID
     Indication: Product used for unknown indication
     Dosage: UNK
     Route: 048
  4. RIFAMPIN [Concomitant]
     Active Substance: RIFAMPIN
     Indication: Product used for unknown indication
     Dosage: UNK
     Route: 048

REACTIONS (7)
  - Ankylosing spondylitis [Unknown]
  - Immune system disorder [Unknown]
  - Papilloma viral infection [Unknown]
  - Induration [Not Recovered/Not Resolved]
  - Mass [Not Recovered/Not Resolved]
  - Diarrhoea [Unknown]
  - Inappropriate schedule of product administration [Unknown]
